FAERS Safety Report 25995569 (Version 2)
Quarter: 2025Q4

REPORT INFORMATION
  Report Type: Spontaneous
  Country: US (occurrence: US)
  Receive Date: 20251104
  Receipt Date: 20251222
  Transmission Date: 20260117
  Serious: Yes (Hospitalization, Other)
  Sender: SANOFI AVENTIS
  Company Number: US-SA-2025SA088340

PATIENT
  Age: 69 Year
  Sex: Female

DRUGS (3)
  1. DUPIXENT [Suspect]
     Active Substance: DUPILUMAB
     Indication: Chronic obstructive pulmonary disease
     Dosage: 300 MG, QOW
     Route: 058
     Dates: start: 202501
  2. DUPIXENT [Suspect]
     Active Substance: DUPILUMAB
     Dosage: 300 MG, QOW
     Route: 058
     Dates: start: 2025
  3. OHTUVAYRE [Concomitant]
     Active Substance: ENSIFENTRINE
     Dosage: UNK

REACTIONS (8)
  - Cardiac failure [Recovering/Resolving]
  - Hypervolaemia [Recovering/Resolving]
  - Hospitalisation [Unknown]
  - Dyspnoea [Not Recovered/Not Resolved]
  - Fall [Unknown]
  - Respiration abnormal [Unknown]
  - Product dose omission issue [Unknown]
  - Dry eye [Unknown]

NARRATIVE: CASE EVENT DATE: 20250101
